FAERS Safety Report 7678356-6 (Version None)
Quarter: 2011Q3

REPORT INFORMATION
  Report Type: 
  Country: None (occurrence: None)
  Receive Date: 20110811
  Receipt Date: 20110809
  Transmission Date: 20111222
  Serious: No
  Sender: FDA-Public Use
  Company Number: US-PFIZER INC-2011183154

PATIENT
  Sex: Male
  Weight: 58.5 kg

DRUGS (4)
  1. LYRICA [Suspect]
     Indication: BURNING SENSATION
     Dosage: 100 MG, 1X/DAY
     Route: 048
     Dates: start: 20110501
  2. CYCLOSPORINE [Concomitant]
     Indication: RENAL DISORDER
     Dosage: UNK
  3. PREDNISONE [Concomitant]
     Indication: RENAL DISORDER
     Dosage: UNK
  4. CELLCEPT [Concomitant]
     Indication: RENAL DISORDER
     Dosage: UNK

REACTIONS (2)
  - SOMNOLENCE [None]
  - WEIGHT INCREASED [None]
